FAERS Safety Report 22811807 (Version 2)
Quarter: 2023Q4

REPORT INFORMATION
  Report Type: Report from Study
  Country: US (occurrence: US)
  Receive Date: 20230811
  Receipt Date: 20231220
  Transmission Date: 20240110
  Serious: No
  Sender: FDA-Public Use
  Company Number: US-ACADIA PHARMACEUTICALS INC.-ACA-2023-PIM-003020

PATIENT
  Sex: Male

DRUGS (2)
  1. NUPLAZID [Suspect]
     Active Substance: PIMAVANSERIN TARTRATE
     Indication: Parkinson^s disease
     Dosage: 34 MILLIGRAM, QD,EVERY OTHER DAY
     Route: 048
     Dates: start: 20230602
  2. ENTACAPONE [Suspect]
     Active Substance: ENTACAPONE

REACTIONS (3)
  - Renal disorder [Unknown]
  - Nightmare [Unknown]
  - Inappropriate schedule of product administration [Unknown]
